FAERS Safety Report 18118398 (Version 1)
Quarter: 2020Q3

REPORT INFORMATION
  Report Type: Spontaneous
  Country: GB (occurrence: GB)
  Receive Date: 20200806
  Receipt Date: 20200806
  Transmission Date: 20201103
  Serious: Yes (Disabling)
  Sender: FDA-Public Use
  Company Number: GB-NOVOPROD-743319

PATIENT
  Age: 65 Year
  Sex: Male
  Weight: 88 kg

DRUGS (9)
  1. SILDENAFIL. [Concomitant]
     Active Substance: SILDENAFIL
     Dosage: UNK (OD WEEKLY)
     Route: 058
     Dates: start: 20191211
  2. TAMSULOSIN HYDROCHLORIDE. [Concomitant]
     Active Substance: TAMSULOSIN HYDROCHLORIDE
     Dosage: 1 CAPS QD
     Route: 065
     Dates: start: 20191211
  3. AMLODIPINE [Concomitant]
     Active Substance: AMLODIPINE BESYLATE
     Dosage: 1 CAPS QD
     Route: 065
     Dates: start: 20191211
  4. OZEMPIC [Suspect]
     Active Substance: SEMAGLUTIDE
     Indication: TYPE 2 DIABETES MELLITUS
     Dosage: UNK
     Route: 065
     Dates: start: 20200504
  5. NOVOMIX [Concomitant]
     Active Substance: INSULIN ASPART
     Dosage: UNK (THREE TIMES A DAY)
     Route: 058
     Dates: start: 20191211
  6. RAMIPRIL. [Concomitant]
     Active Substance: RAMIPRIL
     Dosage: 1 CAPS QD
     Route: 065
     Dates: start: 20191211
  7. ATORVASTATIN [Concomitant]
     Active Substance: ATORVASTATIN
     Dosage: 1 CAPS QD
     Route: 065
     Dates: start: 20191211
  8. FLUOXETINE [Concomitant]
     Active Substance: FLUOXETINE HYDROCHLORIDE
     Dosage: 1 CAPS QD
     Route: 065
     Dates: start: 20191211
  9. SUKKARTO [Concomitant]
     Active Substance: METFORMIN HYDROCHLORIDE
     Dosage: 1 CAPS QD
     Route: 065
     Dates: start: 20191211

REACTIONS (3)
  - Eructation [Unknown]
  - Drug intolerance [Unknown]
  - Gastrooesophageal reflux disease [Recovering/Resolving]

NARRATIVE: CASE EVENT DATE: 20200504
